FAERS Safety Report 13104633 (Version 1)
Quarter: 2017Q1

REPORT INFORMATION
  Report Type: Spontaneous
  Country: US (occurrence: US)
  Receive Date: 20170110
  Receipt Date: 20170110
  Transmission Date: 20170428
  Serious: Yes (Disabling, Other)
  Sender: FDA-Public Use
  Company Number: None

PATIENT
  Age: 2 Year
  Sex: Male
  Weight: 11.25 kg

DRUGS (4)
  1. MIRALAX [Suspect]
     Active Substance: POLYETHYLENE GLYCOL 3350
     Indication: CONSTIPATION
     Dosage: ?          QUANTITY:17 MG;?
     Route: 048
     Dates: start: 20160501, end: 20160731
  2. MULTI-VITAMIN [Concomitant]
     Active Substance: .ALPHA.-TOCOPHEROL ACETATE, DL-\ASCORBIC ACID\CYANOCOBALAMIN\FLUORIDE ION\FOLIC ACID\NIACIN\PYRIDOXINE\RIBOFLAVIN\THIAMINE\VITAMIN A\VITAMIN D
  3. CASTOR OIL. [Concomitant]
     Active Substance: CASTOR OIL
  4. PRUNE JUICE [Concomitant]

REACTIONS (6)
  - Paranoia [None]
  - Screaming [None]
  - Sleep terror [None]
  - Dental caries [None]
  - Separation anxiety disorder [None]
  - Wrong technique in product usage process [None]

NARRATIVE: CASE EVENT DATE: 20160612
